FAERS Safety Report 9758520 (Version 1)
Quarter: 2013Q4

REPORT INFORMATION
  Report Type: Spontaneous
  Country: US (occurrence: None)
  Receive Date: 20131216
  Receipt Date: 20131216
  Transmission Date: 20140711
  Serious: No
  Sender: FDA-Public Use
  Company Number: CABO-13002680

PATIENT
  Age: 56 Year
  Sex: Male

DRUGS (1)
  1. COMETRIQ [Suspect]
     Indication: THYROID CANCER
     Dosage: 140 MG, QD, ORAL
     Route: 048

REACTIONS (5)
  - Blood disorder [None]
  - Feeling abnormal [None]
  - Skin fissures [None]
  - Nausea [None]
  - Diarrhoea [None]
